FAERS Safety Report 22399916 (Version 1)
Quarter: 2023Q2

REPORT INFORMATION
  Report Type: Spontaneous
  Country: KR (occurrence: KR)
  Receive Date: 20230602
  Receipt Date: 20230602
  Transmission Date: 20230721
  Serious: Yes (Hospitalization)
  Sender: FDA-Public Use
  Company Number: KR-ORGANON-O2305KOR003074

PATIENT
  Sex: Female

DRUGS (4)
  1. COZAAR [Suspect]
     Active Substance: LOSARTAN POTASSIUM
     Indication: Essential hypertension
     Dosage: 1 FORMULATION
     Route: 048
     Dates: start: 20200717, end: 20200828
  2. TRIAZOLAM [Concomitant]
     Active Substance: TRIAZOLAM
     Indication: Middle insomnia
     Dosage: 1 FORMULATION
     Route: 048
     Dates: start: 20200704, end: 20200828
  3. ESOMEPRAZOLE MAGNESIUM [Concomitant]
     Active Substance: ESOMEPRAZOLE MAGNESIUM
     Indication: Gastrooesophageal reflux disease
     Dosage: 1 FORMULATION
     Route: 048
     Dates: start: 20200704, end: 20200828
  4. HYDROCHLOROTHIAZIDE [Concomitant]
     Active Substance: HYDROCHLOROTHIAZIDE
     Indication: Essential hypertension
     Dosage: 0.5 FORMULATION
     Route: 048
     Dates: start: 20200717, end: 20200828

REACTIONS (1)
  - Performance status decreased [Recovered/Resolved]

NARRATIVE: CASE EVENT DATE: 20201101
